FAERS Safety Report 25384874 (Version 1)
Quarter: 2025Q2

REPORT INFORMATION
  Report Type: Spontaneous
  Country: US (occurrence: US)
  Receive Date: 20250602
  Receipt Date: 20250602
  Transmission Date: 20250716
  Serious: No
  Sender: EPIC PHARM
  Company Number: US-EPICPHARMA-US-2025EPCSPO00602

PATIENT
  Sex: Female

DRUGS (4)
  1. AZITHROMYCIN [Suspect]
     Active Substance: AZITHROMYCIN
     Indication: Mycobacterial infection
     Route: 065
  2. RIFAMPIN [Suspect]
     Active Substance: RIFAMPIN
     Indication: Mycobacterial infection
     Route: 065
  3. ETHAMBUTOL HYDROCHLORIDE [Suspect]
     Active Substance: ETHAMBUTOL HYDROCHLORIDE
     Indication: Mycobacterial infection
     Route: 065
  4. AMIKACIN [Suspect]
     Active Substance: AMIKACIN
     Indication: Mycobacterial infection
     Route: 065

REACTIONS (2)
  - Tinnitus [Unknown]
  - Drug ineffective for unapproved indication [Unknown]
